FAERS Safety Report 17390618 (Version 1)
Quarter: 2020Q1

REPORT INFORMATION
  Report Type: Spontaneous
  Country: CA (occurrence: US)
  Receive Date: 20200207
  Receipt Date: 20200207
  Transmission Date: 20200409
  Serious: No
  Sender: FDA-Public Use
  Company Number: CA-PRAGMA PHARMACEUTICALS, LLC-2019PRG00243

PATIENT
  Age: 90 Year
  Sex: Female

DRUGS (1)
  1. KEFLEX [Suspect]
     Active Substance: CEPHALEXIN
     Indication: INFECTION PROPHYLAXIS
     Dosage: 250 MG (REPORTED AS 250 MCG)
     Route: 048

REACTIONS (3)
  - Thirst [Recovering/Resolving]
  - Feeding disorder [Not Recovered/Not Resolved]
  - Dry mouth [Recovering/Resolving]
